FAERS Safety Report 17081443 (Version 1)
Quarter: 2019Q4

REPORT INFORMATION
  Report Type: Spontaneous
  Country: US (occurrence: US)
  Receive Date: 20191030
  Receipt Date: 20191030
  Transmission Date: 20200122
  Serious: Yes (Hospitalization)
  Sender: FDA-Public Use
  Company Number: None

PATIENT
  Sex: Male

DRUGS (18)
  1. AMODARONE [Concomitant]
  2. DILTIAZEM. [Concomitant]
     Active Substance: DILTIAZEM
  3. ROSUVASTATIN. [Concomitant]
     Active Substance: ROSUVASTATIN
  4. TORSEMIDE. [Concomitant]
     Active Substance: TORSEMIDE
  5. TACROLIMUS 0.5MG [Suspect]
     Active Substance: TACROLIMUS
     Indication: HEPATIC CANCER
     Route: 048
     Dates: start: 20151031
  6. ALLOPURINOL. [Concomitant]
     Active Substance: ALLOPURINOL
  7. ARMOUR THYROID [Concomitant]
     Active Substance: THYROID, PORCINE
  8. GABAPENTIN. [Concomitant]
     Active Substance: GABAPENTIN
  9. CARTIA XT [Concomitant]
     Active Substance: DILTIAZEM HYDROCHLORIDE
  10. COLCHICINE. [Concomitant]
     Active Substance: COLCHICINE
  11. NEXAVAR [Concomitant]
     Active Substance: SORAFENIB
  12. CLOPIDOGREL [Concomitant]
     Active Substance: CLOPIDOGREL BISULFATE
  13. TRADJENTA [Concomitant]
     Active Substance: LINAGLIPTIN
  14. XARELTO [Concomitant]
     Active Substance: RIVAROXABAN
  15. TACROLIMUS  0.5 [Suspect]
     Active Substance: TACROLIMUS
  16. FUROSEMIDE. [Concomitant]
     Active Substance: FUROSEMIDE
  17. METOPROLOL TARTRATE. [Concomitant]
     Active Substance: METOPROLOL TARTRATE
  18. PROMETHAZINE [Concomitant]
     Active Substance: PROMETHAZINE HYDROCHLORIDE

REACTIONS (1)
  - Cardiac disorder [None]
